FAERS Safety Report 21682741 (Version 1)
Quarter: 2022Q4

REPORT INFORMATION
  Report Type: Spontaneous
  Country: CN (occurrence: CN)
  Receive Date: 20221205
  Receipt Date: 20221205
  Transmission Date: 20230113
  Serious: Yes (Hospitalization, Other)
  Sender: FDA-Public Use
  Company Number: CN-009507513-2212CHN000203

PATIENT
  Age: 26 Year
  Sex: Female
  Weight: 98 kg

DRUGS (2)
  1. CILASTATIN SODIUM\IMIPENEM [Suspect]
     Active Substance: CILASTATIN SODIUM\IMIPENEM
     Indication: Pneumonia
     Dosage: 0.5 G, Q6H, (ROUTE OF ADMINISTRATION ALSO REPORTED AS MICROPUMP INFUSION)
     Route: 041
     Dates: start: 20221103, end: 20221104
  2. CILASTATIN SODIUM\IMIPENEM [Suspect]
     Active Substance: CILASTATIN SODIUM\IMIPENEM
     Indication: Symptomatic treatment

REACTIONS (3)
  - Loss of consciousness [Recovering/Resolving]
  - Anal incontinence [Recovering/Resolving]
  - Muscle twitching [Recovering/Resolving]

NARRATIVE: CASE EVENT DATE: 20221104
